FAERS Safety Report 4699154-1 (Version None)
Quarter: 2005Q2

REPORT INFORMATION
  Report Type: 
  Country: None (occurrence: None)
  Receive Date: 20050624
  Receipt Date: 20050613
  Transmission Date: 20051028
  Serious: Yes (Hospitalization)
  Sender: FDA-Public Use
  Company Number: BR-JNJFOC-20050604670

PATIENT
  Age: 29 Year
  Sex: Female

DRUGS (4)
  1. ORTHO EVRA [Suspect]
     Indication: OFF LABEL USE
     Route: 062
  2. ORTHO EVRA [Suspect]
     Route: 062
  3. OMEPRAZOLE [Concomitant]
     Indication: GASTRITIS
  4. NORFLOXACIN [Concomitant]

REACTIONS (4)
  - ABDOMINAL DISTENSION [None]
  - GASTRITIS [None]
  - OFF LABEL USE [None]
  - URINARY TRACT INFECTION [None]
